FAERS Safety Report 7969052-6 (Version None)
Quarter: 2011Q4

REPORT INFORMATION
  Report Type: 
  Country: None (occurrence: None)
  Receive Date: 20111209
  Receipt Date: 20111125
  Transmission Date: 20120403
  Serious: Yes (Disabling)
  Sender: FDA-Public Use
  Company Number: JP-ALLERGAN-1115733US

PATIENT
  Age: 37 Year
  Sex: Female

DRUGS (9)
  1. UNIPHYL [Suspect]
     Indication: PNEUMONIA MYCOPLASMAL
     Dosage: UNK
     Route: 048
     Dates: end: 20111114
  2. ACETAMINOPHEN [Concomitant]
  3. EMPYNASE [Concomitant]
  4. SINGULAIR [Concomitant]
  5. SYMBICORT [Concomitant]
     Route: 055
  6. ONON [Suspect]
     Indication: PNEUMONIA MYCOPLASMAL
     Dosage: UNK
     Route: 048
     Dates: end: 20111114
  7. EPINASTINE HYDROCHLORIDE [Suspect]
     Indication: PNEUMONIA MYCOPLASMAL
     Dosage: UNK
     Route: 048
     Dates: end: 20111114
  8. HUSCODE [Concomitant]
  9. CLARITHROMYCIN [Suspect]
     Indication: PNEUMONIA MYCOPLASMAL
     Dosage: UNK
     Route: 048
     Dates: end: 20111114

REACTIONS (1)
  - RHABDOMYOLYSIS [None]
